FAERS Safety Report 23375768 (Version 1)
Quarter: 2024Q1

REPORT INFORMATION
  Report Type: Report from Study
  Country: US (occurrence: US)
  Receive Date: 20240107
  Receipt Date: 20240107
  Transmission Date: 20240409
  Serious: Yes (Other)
  Sender: FDA-Public Use
  Company Number: US-ABBVIE-5528330

PATIENT
  Age: 52 Year
  Sex: Female

DRUGS (3)
  1. HUMIRA [Suspect]
     Active Substance: ADALIMUMAB
     Indication: Ankylosing spondylitis
     Dosage: CITRATE FREE?DRUG END DATE:2021?FORM STRENGTH-40MG
     Route: 058
     Dates: start: 20210318
  2. HUMIRA [Suspect]
     Active Substance: ADALIMUMAB
     Indication: Iritis
     Dosage: CITRATE FREE?FORM STRENGTH-40MG
     Route: 058
     Dates: start: 20211201
  3. HUMIRA [Suspect]
     Active Substance: ADALIMUMAB
     Dosage: CITRATE FREE?FORM STRENGTH-40MG
     Route: 058
     Dates: start: 2023

REACTIONS (4)
  - Gallbladder enlargement [Unknown]
  - Hypoaesthesia [Recovered/Resolved]
  - Gastrointestinal disorder [Recovered/Resolved]
  - Limb injury [Unknown]

NARRATIVE: CASE EVENT DATE: 20211001
